FAERS Safety Report 11080676 (Version 1)
Quarter: 2015Q2

REPORT INFORMATION
  Report Type: Spontaneous
  Country: US (occurrence: None)
  Receive Date: 20150430
  Receipt Date: 20150430
  Transmission Date: 20150821
  Serious: No
  Sender: FDA-Public Use
  Company Number: None

PATIENT
  Age: 36 Year
  Sex: Female
  Weight: 51.26 kg

DRUGS (2)
  1. DAILY VITAMIN [Concomitant]
     Active Substance: VITAMINS
  2. MIRALAX [Suspect]
     Active Substance: POLYETHYLENE GLYCOL 3350
     Indication: CONSTIPATION
     Route: 048
     Dates: start: 20091201, end: 20150429

REACTIONS (7)
  - Fatigue [None]
  - Mood swings [None]
  - Headache [None]
  - Arthritis [None]
  - Alopecia [None]
  - Amnesia [None]
  - Nail disorder [None]
